FAERS Safety Report 20049131 (Version 1)
Quarter: 2021Q4

REPORT INFORMATION
  Report Type: Other
  Country: AU (occurrence: None)
  Receive Date: 20211109
  Receipt Date: 20211109
  Transmission Date: 20220303
  Serious: Yes (Other)
  Sender: FDA-Public Use
  Company Number: AU-ROCHE-2950795

PATIENT

DRUGS (1)
  1. RITUXIMAB [Suspect]
     Active Substance: RITUXIMAB
     Indication: Central nervous system inflammation
     Route: 065

REACTIONS (26)
  - Pneumonia [Unknown]
  - Gastroenteritis salmonella [Unknown]
  - Bronchiectasis [Unknown]
  - Neutropenia [Unknown]
  - Anaphylactic reaction [Unknown]
  - Gastroenteritis clostridial [Unknown]
  - Mastoiditis [Unknown]
  - Bradycardia [Unknown]
  - Empyema [Unknown]
  - Lymphopenia [Unknown]
  - B-lymphocyte count decreased [Unknown]
  - Hypogammaglobulinaemia [Unknown]
  - Anaemia [Unknown]
  - Thrombocytopenia [Unknown]
  - Rash [Unknown]
  - Pyrexia [Unknown]
  - Tachycardia [Unknown]
  - Chest pain [Unknown]
  - Headache [Unknown]
  - Hypotension [Unknown]
  - Hypertension [Unknown]
  - Panic attack [Unknown]
  - Tremor [Unknown]
  - Swelling face [Unknown]
  - Tremor [Unknown]
  - Off label use [Unknown]
